FAERS Safety Report 5556834-3 (Version None)
Quarter: 2007Q4

REPORT INFORMATION
  Report Type: 
  Country: None (occurrence: None)
  Receive Date: 20071211
  Receipt Date: 20071211
  Transmission Date: 20080405
  Serious: No
  Sender: FDA-Public Use
  Company Number: None

PATIENT

DRUGS (1)
  1. FLOXIN [Suspect]

REACTIONS (49)
  - ABASIA [None]
  - ANAEMIA HAEMOLYTIC AUTOIMMUNE [None]
  - BLINDNESS [None]
  - BLOOD GLUCOSE ABNORMAL [None]
  - BONE MARROW FAILURE [None]
  - BRAIN DAMAGE [None]
  - COAGULOPATHY [None]
  - CRYSTALLURIA [None]
  - DEAFNESS [None]
  - DISBACTERIOSIS [None]
  - DRUG ADMINISTRATION ERROR [None]
  - DRUG TOXICITY [None]
  - ELECTROCARDIOGRAM QT PROLONGED [None]
  - GAIT DISTURBANCE [None]
  - HEARING IMPAIRED [None]
  - HEPATIC FAILURE [None]
  - HEPATITIS [None]
  - HEPATOCELLULAR DAMAGE [None]
  - HEPATORENAL SYNDROME [None]
  - HEPATOTOXICITY [None]
  - HYPERGLYCAEMIA [None]
  - HYPERSENSITIVITY [None]
  - HYPOGLYCAEMIA [None]
  - INJURY [None]
  - INSOMNIA [None]
  - LEUKOCYTOCLASTIC VASCULITIS [None]
  - LIVER DISORDER [None]
  - LIVER TRANSPLANT [None]
  - NEPHRITIS INTERSTITIAL [None]
  - NEPHROLITHIASIS [None]
  - NEPHROPATHY [None]
  - NEPHROPATHY TOXIC [None]
  - PANCREATITIS [None]
  - PANCYTOPENIA [None]
  - PARALYSIS [None]
  - PSEUDOMEMBRANOUS COLITIS [None]
  - PSYCHOTIC DISORDER [None]
  - PURPURA [None]
  - RENAL DISORDER [None]
  - RENAL FAILURE [None]
  - RENAL FAILURE ACUTE [None]
  - RENAL VASCULITIS [None]
  - RHABDOMYOLYSIS [None]
  - STEVENS-JOHNSON SYNDROME [None]
  - TENDON RUPTURE [None]
  - TENDONITIS [None]
  - TINNITUS [None]
  - TOXIC EPIDERMAL NECROLYSIS [None]
  - VISUAL DISTURBANCE [None]
